FAERS Safety Report 8232883-1 (Version None)
Quarter: 2012Q1

REPORT INFORMATION
  Report Type: 
  Country: None (occurrence: None)
  Receive Date: 20120324
  Receipt Date: 20120316
  Transmission Date: 20120608
  Serious: Yes (Hospitalization)
  Sender: FDA-Public Use
  Company Number: US-ASTRAZENECA-2012SE06365

PATIENT
  Age: 37 Year
  Sex: Male

DRUGS (1)
  1. SYMBICORT [Suspect]
     Dosage: 160/4.5 ?G UNKNOWN FREQUENCY
     Route: 055

REACTIONS (4)
  - ASTHMA [None]
  - DRUG DOSE OMISSION [None]
  - DYSPNOEA [None]
  - ASTHENIA [None]
